FAERS Safety Report 4940638-6 (Version None)
Quarter: 2006Q1

REPORT INFORMATION
  Report Type: 
  Country: None (occurrence: None)
  Receive Date: 20060206
  Receipt Date: 20051115
  Transmission Date: 20060701
  Serious: Yes (Other)
  Sender: FDA-Public Use
  Company Number: MEDI-0003857

PATIENT
  Age: 61 Year
  Sex: Male
  Weight: 72.8023 kg

DRUGS (12)
  1. ETHYOL [Suspect]
     Indication: CHEMOTHERAPY
     Dosage: 500 MG, 5 IN 1 WK, SUBCUTANEOUS
     Route: 058
     Dates: start: 20051012, end: 20051020
  2. ETHYOL [Suspect]
     Indication: RADIOTHERAPY
     Dosage: 500 MG, 5 IN 1 WK, SUBCUTANEOUS
     Route: 058
     Dates: start: 20051012, end: 20051020
  3. ETHYOL [Suspect]
  4. LASIX [Suspect]
  5. TAXOL [Concomitant]
  6. CARBOPLATIN [Concomitant]
  7. RADIATION THERAPY [Concomitant]
  8. LISINOPRIL [Concomitant]
  9. ASPIRIN [Concomitant]
  10. PREVACID [Concomitant]
  11. ANCEF [Concomitant]
  12. LASIX [Concomitant]

REACTIONS (10)
  - HICCUPS [None]
  - INSOMNIA [None]
  - MALAISE [None]
  - NAUSEA [None]
  - NIKOLSKY'S SIGN [None]
  - PRURITUS [None]
  - RASH [None]
  - RASH PAPULAR [None]
  - SKIN BURNING SENSATION [None]
  - SKIN DISORDER [None]
